FAERS Safety Report 5585345-4 (Version None)
Quarter: 2008Q1

REPORT INFORMATION
  Report Type: 
  Country: None (occurrence: None)
  Receive Date: 20080109
  Receipt Date: 20080103
  Transmission Date: 20080703
  Serious: Yes (Hospitalization)
  Sender: FDA-Public Use
  Company Number: US-ROCHE-526857

PATIENT
  Age: 70 Year
  Sex: Female

DRUGS (5)
  1. BONIVA [Suspect]
     Indication: OSTEOPOROSIS
     Route: 048
     Dates: start: 20070225, end: 20071028
  2. BONIVA [Suspect]
     Route: 042
     Dates: start: 20071126
  3. ZETIA [Concomitant]
  4. PRILOSEC [Concomitant]
  5. VITAMINS NOS [Concomitant]

REACTIONS (4)
  - GASTRITIS [None]
  - HIATUS HERNIA [None]
  - OESOPHAGITIS [None]
  - PEPTIC ULCER [None]
